FAERS Safety Report 23001030 (Version 2)
Quarter: 2023Q4

REPORT INFORMATION
  Report Type: Spontaneous
  Country: US (occurrence: US)
  Receive Date: 20230928
  Receipt Date: 20231013
  Transmission Date: 20240109
  Serious: Yes (Hospitalization, Other)
  Sender: FDA-Public Use
  Company Number: US-LUPIN PHARMACEUTICALS INC.-2023-08187

PATIENT

DRUGS (7)
  1. RIFAMPIN [Suspect]
     Active Substance: RIFAMPIN
     Indication: Lung disorder
     Dosage: 150 MG, QD (ONCE A DAY)
     Route: 065
     Dates: start: 20230828, end: 20230914
  2. RIFAMPIN [Suspect]
     Active Substance: RIFAMPIN
     Indication: Lung disorder
     Dosage: 300 MG, QD (ONCE A DAY)
     Route: 065
     Dates: start: 20230828, end: 20230914
  3. ETHAMBUTOL [Concomitant]
     Active Substance: ETHAMBUTOL HYDROCHLORIDE
     Indication: Product used for unknown indication
     Dosage: 100 MG, BID (TWICE A DAY)
     Route: 065
  4. ETHAMBUTOL [Concomitant]
     Active Substance: ETHAMBUTOL HYDROCHLORIDE
     Dosage: 400 MG, QD (ONCE A DAY)
     Route: 065
  5. AZITHROMYCIN [Concomitant]
     Active Substance: AZITHROMYCIN
     Indication: Product used for unknown indication
     Dosage: 250 MG, QD (ONCE A DAY)
     Route: 065
  6. PROLIA [Concomitant]
     Active Substance: DENOSUMAB
     Indication: Osteoporosis
     Dosage: UNK
     Route: 065
  7. ALBUTEROL [Concomitant]
     Active Substance: ALBUTEROL
     Indication: Product used for unknown indication
     Dosage: UNK, BID (TWICE A DAY)
     Route: 065

REACTIONS (5)
  - Gingival bleeding [Recovered/Resolved]
  - Contusion [Recovered/Resolved]
  - Oral purpura [Recovered/Resolved]
  - Platelet count decreased [Recovered/Resolved]
  - Purpura [Recovered/Resolved]

NARRATIVE: CASE EVENT DATE: 20230914
